FAERS Safety Report 11630525 (Version 2)
Quarter: 2016Q4

REPORT INFORMATION
  Report Type: Spontaneous
  Country: US (occurrence: US)
  Receive Date: 20151014
  Receipt Date: 20161004
  Transmission Date: 20170206
  Serious: No
  Sender: FDA-Public Use
  Company Number: US-UNICHEM LABORATORIES LIMITED-UCM201508-000564

PATIENT
  Sex: Male

DRUGS (8)
  1. XANAX [Concomitant]
     Active Substance: ALPRAZOLAM
     Indication: SINUS DISORDER
  2. HYDROCHLOROTHIAZIDE. [Suspect]
     Active Substance: HYDROCHLOROTHIAZIDE
     Indication: BLOOD PRESSURE MEASUREMENT
     Route: 048
     Dates: start: 2009
  3. PRAVASTATIN. [Concomitant]
     Active Substance: PRAVASTATIN
  4. CODED ASPIRIN [Concomitant]
     Indication: CARDIAC DISORDER
  5. METOPROLOL. [Concomitant]
     Active Substance: METOPROLOL
  6. FOLIC ACID. [Concomitant]
     Active Substance: FOLIC ACID
  7. KLOR-CON M20 [Concomitant]
     Active Substance: POTASSIUM CHLORIDE
  8. AMIODARONE HCL [Concomitant]
     Active Substance: AMIODARONE HYDROCHLORIDE

REACTIONS (3)
  - Swelling [Not Recovered/Not Resolved]
  - Abdominal pain upper [Not Recovered/Not Resolved]
  - Glucose tolerance impaired [Unknown]
